FAERS Safety Report 7595263-8 (Version None)
Quarter: 2011Q3

REPORT INFORMATION
  Report Type: 
  Country: None (occurrence: None)
  Receive Date: 20110707
  Receipt Date: 20110704
  Transmission Date: 20111222
  Serious: Yes (Life-Threatening)
  Sender: FDA-Public Use
  Company Number: NL-ROXANE LABORATORIES, INC.-2011-RO-00938RO

PATIENT
  Age: 64 Year
  Sex: Female

DRUGS (10)
  1. FLUOROURACIL [Suspect]
     Indication: BREAST CANCER
  2. CITALOPRAM HYDROBROMIDE [Suspect]
     Indication: DEPRESSION
  3. FLURAZEPAM [Suspect]
     Indication: DEPRESSION
  4. ALPRAZOLAM [Suspect]
     Indication: DEPRESSION
  5. DEXAMETHASONE [Suspect]
     Indication: PROPHYLAXIS OF NAUSEA AND VOMITING
  6. EPIRUBICIN [Suspect]
     Indication: BREAST CANCER
  7. ONDANSETRON [Suspect]
     Indication: PROPHYLAXIS OF NAUSEA AND VOMITING
  8. FLURAZEPAM [Suspect]
     Indication: ANXIETY DISORDER
  9. CYCLOPHOSPHAMIDE [Suspect]
     Indication: BREAST CANCER
  10. ALPRAZOLAM [Suspect]
     Indication: ANXIETY DISORDER

REACTIONS (1)
  - HYPONATRAEMIA [None]
